FAERS Safety Report 19415414 (Version 2)
Quarter: 2022Q2

REPORT INFORMATION
  Report Type: Report from Study
  Country: DE (occurrence: DE)
  Receive Date: 20210614
  Receipt Date: 20220622
  Transmission Date: 20220721
  Serious: Yes (Hospitalization, Other)
  Sender: FDA-Public Use
  Company Number: DE-002147023-PHHY2018DE034994

PATIENT
  Sex: Female
  Weight: 72 kg

DRUGS (7)
  1. LETROZOLE [Suspect]
     Active Substance: LETROZOLE
     Indication: Breast cancer metastatic
     Dosage: 2.5 MILLIGRAM, QD
     Route: 048
     Dates: start: 20180614
  2. KISQALI [Suspect]
     Active Substance: RIBOCICLIB
     Indication: Breast cancer metastatic
     Dosage: 600 MG, QD (SCHEME: INTAKE 21 DAYS WITH 7 DAYS PAUSE)
     Route: 048
     Dates: start: 20180614, end: 20180625
  3. KISQALI [Suspect]
     Active Substance: RIBOCICLIB
     Dosage: 600 MG, QD (SCHEME: INTAKE 21 DAYS WITH 7 DAYS PAUSE)
     Route: 048
     Dates: start: 20180626, end: 20180710
  4. KISQALI [Suspect]
     Active Substance: RIBOCICLIB
     Dosage: 400 MG, QD  (SCHEME: INTAKE 21 DAYS WITH 7 DAYS PAUSE)/11-JUL-2018
     Route: 048
     Dates: end: 20180725
  5. KISQALI [Suspect]
     Active Substance: RIBOCICLIB
     Dosage: 200 MG, QD(SCHEME: INTAKE 21 DAYS WITH 7 DAYS PAUSE)/14-AUG-2018
     Route: 048
     Dates: end: 20181211
  6. KISQALI [Suspect]
     Active Substance: RIBOCICLIB
     Dosage: 400 MG, QD(SCHEME: INTAKE 21 DAYS WITH 7 DAYS PAUSE)/12-DEC-2018
     Route: 048
  7. EDOXABAN TOSYLATE [Concomitant]
     Active Substance: EDOXABAN TOSYLATE
     Indication: Anticoagulant therapy
     Dosage: 60 MILLIGRAM/ START DATE: 2018
     Route: 048
     Dates: end: 20181025

REACTIONS (9)
  - Upper gastrointestinal haemorrhage [Recovered/Resolved]
  - Haemoglobin decreased [Recovered/Resolved]
  - Angiodysplasia [Recovered/Resolved]
  - Melaena [Recovered/Resolved]
  - Thrombocytopenia [Recovered/Resolved]
  - Leukopenia [Recovered/Resolved]
  - Chronic obstructive pulmonary disease [Not Recovered/Not Resolved]
  - Lymphoedema [Not Recovered/Not Resolved]
  - Iron deficiency [Recovered/Resolved]

NARRATIVE: CASE EVENT DATE: 20180626
